FAERS Safety Report 11325126 (Version 1)
Quarter: 2015Q3

REPORT INFORMATION
  Report Type: Other
  Country: IT (occurrence: IT)
  Receive Date: 20150730
  Receipt Date: 20150730
  Transmission Date: 20151125
  Serious: Yes (Other)
  Sender: FDA-Public Use
  Company Number: IT-MYLANLABS-2015M1020415

PATIENT

DRUGS (7)
  1. LEVOFOLINIC ACID [Concomitant]
     Active Substance: LEVOLEUCOVORIN
     Indication: PRODUCT USED FOR UNKNOWN INDICATION
     Dosage: 320 MG, UNK
     Route: 042
     Dates: start: 20150123, end: 20150325
  2. SERETIDE [Concomitant]
     Active Substance: FLUTICASONE FUROATE\SALMETEROL XINAFOATE
     Indication: PRODUCT USED FOR UNKNOWN INDICATION
     Dosage: UNK
  3. MICARDIS [Concomitant]
     Active Substance: TELMISARTAN
     Indication: PRODUCT USED FOR UNKNOWN INDICATION
     Dosage: UNK
  4. FLUOROURACIL. [Suspect]
     Active Substance: FLUOROURACIL
     Indication: COLON CANCER
     Dosage: 650 MG, CYCLE
     Route: 040
     Dates: start: 20150123
  5. OXALIPLATIN. [Suspect]
     Active Substance: OXALIPLATIN
     Indication: COLON CANCER
     Dosage: 140 MG, CYCLE
     Route: 042
     Dates: start: 20150123
  6. AVASTIN [Suspect]
     Active Substance: BEVACIZUMAB
     Indication: COLON CANCER
     Dosage: 290 MG, CYCLE
     Route: 042
     Dates: start: 20150123, end: 20150325
  7. FLUOROURACIL. [Suspect]
     Active Substance: FLUOROURACIL
     Dosage: 3920 MG, CYCLE
     Route: 041
     Dates: start: 20150123

REACTIONS (3)
  - Infusion related reaction [Recovering/Resolving]
  - Paraesthesia [Recovering/Resolving]
  - Laryngospasm [Recovering/Resolving]

NARRATIVE: CASE EVENT DATE: 20150206
